FAERS Safety Report 20286451 (Version 1)
Quarter: 2022Q1

REPORT INFORMATION
  Report Type: Report from Study
  Country: CA (occurrence: CA)
  Receive Date: 20220103
  Receipt Date: 20220103
  Transmission Date: 20220423
  Serious: Yes (Other)
  Sender: FDA-Public Use
  Company Number: None

PATIENT
  Age: 65 Year
  Sex: Male

DRUGS (10)
  1. AMLODIPINE BESYLATE [Suspect]
     Active Substance: AMLODIPINE BESYLATE
     Indication: Hypertension
  2. SANDOSTATIN [Suspect]
     Active Substance: OCTREOTIDE ACETATE
     Indication: Carcinoid tumour of the liver
     Route: 030
  3. AMIODARONE [Concomitant]
     Active Substance: AMIODARONE
  4. ASPIRIN [Concomitant]
     Active Substance: ASPIRIN
  5. CIPROFLOXACIN [Concomitant]
     Active Substance: CIPROFLOXACIN
     Dosage: 2 EVERY 1 DAYS
  6. ELIQUIS [Concomitant]
     Active Substance: APIXABAN
     Dosage: 2 EVERY 1 DAYS
  7. LASIX [Concomitant]
     Active Substance: FUROSEMIDE
  8. METOPROLOL [Concomitant]
     Active Substance: METOPROLOL
  9. MOXIFLOXACIN HYDROCHLORIDE [Concomitant]
     Active Substance: MOXIFLOXACIN HYDROCHLORIDE
  10. VITAMIN C [Concomitant]
     Active Substance: ASCORBIC ACID

REACTIONS (5)
  - Blood pressure increased [Not Recovered/Not Resolved]
  - Dizziness [Not Recovered/Not Resolved]
  - Fatigue [Not Recovered/Not Resolved]
  - Joint swelling [Not Recovered/Not Resolved]
  - Inappropriate schedule of product administration [Unknown]
